FAERS Safety Report 8382804-6 (Version None)
Quarter: 2012Q2

REPORT INFORMATION
  Report Type: 
  Country: None (occurrence: None)
  Receive Date: 20120524
  Receipt Date: 20120511
  Transmission Date: 20120825
  Serious: Yes (Other)
  Sender: FDA-Public Use
  Company Number: AT-JNJFOC-20120511626

PATIENT
  Age: 54 Year
  Sex: Female
  Weight: 71 kg

DRUGS (7)
  1. REMICADE [Suspect]
     Indication: RHEUMATOID ARTHRITIS
     Route: 042
  2. XEFO [Concomitant]
     Route: 065
  3. REMICADE [Suspect]
     Dosage: 4TH INFUSION
     Route: 042
     Dates: start: 20120510, end: 20120510
  4. HALCION [Concomitant]
     Route: 065
  5. ARAVA [Concomitant]
     Route: 065
  6. LISINOPRIL [Concomitant]
     Route: 065
  7. PANTOPRAZOLE [Concomitant]
     Route: 065

REACTIONS (8)
  - TACHYCARDIA [None]
  - RESTLESSNESS [None]
  - HYPERSENSITIVITY [None]
  - DYSPNOEA [None]
  - PRURITUS [None]
  - BLOOD PRESSURE INCREASED [None]
  - INFUSION SITE REACTION [None]
  - INFUSION RELATED REACTION [None]
